FAERS Safety Report 6817311-2 (Version None)
Quarter: 2010Q3

REPORT INFORMATION
  Report Type: 
  Country: None (occurrence: None)
  Receive Date: 20100706
  Receipt Date: 20100629
  Transmission Date: 20110219
  Serious: Yes (Other)
  Sender: FDA-Public Use
  Company Number: JP-BAYER-201030953GPV

PATIENT
  Age: 64 Year
  Sex: Male

DRUGS (7)
  1. ASPIRIN [Suspect]
     Indication: ANTIPLATELET THERAPY
  2. ASPIRIN [Suspect]
  3. TICLOPIDINE HCL [Suspect]
     Indication: ANTIPLATELET THERAPY
  4. TICLOPIDINE HCL [Suspect]
  5. HEPARIN [Concomitant]
     Indication: NEPHRECTOMY
  6. HEPARIN [Concomitant]
  7. WHOLE BLOOD [Concomitant]

REACTIONS (2)
  - ABSCESS [None]
  - THROMBOSIS [None]
